FAERS Safety Report 4902687-3 (Version None)
Quarter: 2006Q1

REPORT INFORMATION
  Report Type: 
  Country: None (occurrence: None)
  Receive Date: 20060207
  Receipt Date: 20060124
  Transmission Date: 20060701
  Serious: Yes (Other)
  Sender: FDA-Public Use
  Company Number: JP-ROCHE-433915

PATIENT
  Age: 74 Year
  Sex: Male

DRUGS (3)
  1. TAMIFLU [Suspect]
     Indication: PYREXIA
     Route: 048
     Dates: start: 20060115, end: 20060119
  2. PREDNISOLONE SODIUM SUCCINATE INJ [Concomitant]
     Dosage: ROUTE OF ADMINISTRATION REPORTED AS INTRAVENOUS (NOT OTHERWISE SPECIFIED). 60 MG ADMINISTERED ON 15+
     Route: 042
     Dates: start: 20060115, end: 20060116
  3. NORVASC [Concomitant]
     Route: 048
     Dates: start: 20060113, end: 20060114

REACTIONS (1)
  - PLATELET COUNT DECREASED [None]
